FAERS Safety Report 6521721-0 (Version None)
Quarter: 2009Q4

REPORT INFORMATION
  Report Type: 
  Country: None (occurrence: None)
  Receive Date: 20091222
  Receipt Date: 20091204
  Transmission Date: 20100525
  Serious: Yes (Other)
  Sender: FDA-Public Use
  Company Number: AUR-APL-2009-01503

PATIENT
  Age: 71 Year
  Sex: Male
  Weight: 91 kg

DRUGS (10)
  1. METFORMIN HCL [Suspect]
     Indication: DIABETES MELLITUS
  2. GLYBURIDE [Suspect]
     Indication: DIABETES MELLITUS
  3. AMARYL [Suspect]
     Indication: DIABETES MELLITUS
  4. LIPITOR [Suspect]
     Dosage: 10MG - DAILY - ORAL
     Route: 048
     Dates: start: 19940101
  5. PLAVIX [Suspect]
     Dosage: 75MG - DAILY - ORAL
     Route: 048
     Dates: start: 19940101
  6. LISINOPRIL [Concomitant]
  7. METOPROLOL TARTRATE [Concomitant]
  8. ATROPINE W/DIPHENOXYLATE [Concomitant]
  9. ASPIRIN [Concomitant]
  10. VITAMIN C [Concomitant]

REACTIONS (4)
  - BLOOD GLUCOSE INCREASED [None]
  - DIABETES MELLITUS INADEQUATE CONTROL [None]
  - DIARRHOEA [None]
  - FLATULENCE [None]
